FAERS Safety Report 18787378 (Version 1)
Quarter: 2021Q1

REPORT INFORMATION
  Report Type: Spontaneous
  Country: US (occurrence: US)
  Receive Date: 20210126
  Receipt Date: 20210126
  Transmission Date: 20210419
  Serious: Yes (Other)
  Sender: FDA-Public Use
  Company Number: US-ROCHE-2752702

PATIENT
  Age: 70 Year
  Sex: Female
  Weight: 66.74 kg

DRUGS (5)
  1. AVASTIN [Suspect]
     Active Substance: BEVACIZUMAB
     Indication: DIABETIC RETINOPATHY
     Dosage: ONGOING: NO
     Route: 065
  2. LUCENTIS [Suspect]
     Active Substance: RANIBIZUMAB
     Indication: DIABETIC RETINOPATHY
     Route: 050
     Dates: start: 201907, end: 20201205
  3. LISINOPRIL. [Concomitant]
     Active Substance: LISINOPRIL
     Indication: BLOOD PRESSURE DECREASED
     Dosage: ONGOING YES, TAKES HALF A DAY IF THAT
     Dates: start: 202012
  4. LUMIGAN [Concomitant]
     Active Substance: BIMATOPROST
     Indication: EYE DISORDER
     Dosage: ONGOING YES
     Dates: start: 201902
  5. LUMIGAN [Concomitant]
     Active Substance: BIMATOPROST
     Indication: GLAUCOMA

REACTIONS (9)
  - Taste disorder [Unknown]
  - Gastrointestinal disorder [Recovered/Resolved]
  - Off label use [Unknown]
  - Dysphonia [Recovered/Resolved]
  - Blood pressure increased [Recovered/Resolved]
  - Eye haemorrhage [Unknown]
  - Tremor [Recovered/Resolved]
  - Nausea [Recovered/Resolved]
  - Intentional product use issue [Unknown]

NARRATIVE: CASE EVENT DATE: 202010
